FAERS Safety Report 9631771 (Version 2)
Quarter: 2013Q4

REPORT INFORMATION
  Report Type: Spontaneous
  Country: GB (occurrence: None)
  Receive Date: 20131016
  Receipt Date: 20131112
  Transmission Date: 20140711
  Serious: Yes (Other)
  Sender: FDA-Public Use
  Company Number: AUR-APL-2013-08404

PATIENT
  Sex: Female

DRUGS (5)
  1. RIBAVIRIN [Suspect]
     Indication: PRODUCT USED FOR UNKNOWN INDICATION
     Route: 048
  2. ABACAVIR [Suspect]
     Indication: PRODUCT USED FOR UNKNOWN INDICATION
  3. ATAZANAVIR [Suspect]
     Indication: PRODUCT USED FOR UNKNOWN INDICATION
  4. INCIVO [Suspect]
     Indication: HEPATITIS C
     Route: 048
  5. RALTEGRAVIR [Suspect]
     Indication: PRODUCT USED FOR UNKNOWN INDICATION
     Route: 048

REACTIONS (6)
  - Haemoglobin decreased [None]
  - Fatigue [None]
  - Decreased appetite [None]
  - Weight decreased [None]
  - Feeling cold [None]
  - Off label use [None]
